FAERS Safety Report 12744598 (Version 1)
Quarter: 2016Q3

REPORT INFORMATION
  Report Type: Spontaneous
  Country: US (occurrence: US)
  Receive Date: 20160914
  Receipt Date: 20160914
  Transmission Date: 20161109
  Serious: No
  Sender: FDA-Public Use
  Company Number: US-JAZZ-2016-US-009470

PATIENT
  Sex: Male

DRUGS (7)
  1. WELLBUTRIN [Concomitant]
     Active Substance: BUPROPION HYDROCHLORIDE
  2. XYREM [Suspect]
     Active Substance: SODIUM OXYBATE
     Indication: CATAPLEXY
     Dosage: DOSE ADJUSTMENTS
     Route: 048
  3. AMBIEN [Concomitant]
     Active Substance: ZOLPIDEM TARTRATE
  4. XYREM [Suspect]
     Active Substance: SODIUM OXYBATE
     Indication: NARCOLEPSY
     Dosage: 2.25 G, BID
     Route: 048
     Dates: start: 200610, end: 200611
  5. TYLENOL [Concomitant]
     Active Substance: ACETAMINOPHEN
  6. XYREM [Suspect]
     Active Substance: SODIUM OXYBATE
     Dosage: 4.5 G, BID
     Route: 048
     Dates: start: 201511
  7. DEXEDRINE [Concomitant]
     Active Substance: DEXTROAMPHETAMINE SULFATE

REACTIONS (1)
  - Therapeutic response decreased [Unknown]
